FAERS Safety Report 14074479 (Version 1)
Quarter: 2017Q4

REPORT INFORMATION
  Report Type: Spontaneous
  Country: GB (occurrence: GB)
  Receive Date: 20171011
  Receipt Date: 20171011
  Transmission Date: 20180321
  Serious: Yes (Hospitalization, Other)
  Sender: FDA-Public Use
  Company Number: GB-TEVA-813406ACC

PATIENT
  Age: 82 Year
  Sex: Male

DRUGS (7)
  1. MEMANTINE. [Concomitant]
     Active Substance: MEMANTINE
  2. LACIDIPINE [Concomitant]
     Active Substance: LACIDIPINE
  3. TRIMETHOPRIM. [Suspect]
     Active Substance: TRIMETHOPRIM
     Indication: URINARY TRACT INFECTION
     Dosage: 400 MILLIGRAM DAILY;
     Route: 048
     Dates: start: 20170904, end: 20170911
  4. WARFARIN [Suspect]
     Active Substance: WARFARIN
     Dosage: WITHHELD SINCE ADMISSION.
     Dates: end: 20170912
  5. ATENOLOL. [Concomitant]
     Active Substance: ATENOLOL
  6. LOSARTAN. [Concomitant]
     Active Substance: LOSARTAN
  7. PRAVASTATIN SODIUM. [Concomitant]
     Active Substance: PRAVASTATIN SODIUM

REACTIONS (3)
  - Drug interaction [Unknown]
  - International normalised ratio increased [Recovering/Resolving]
  - Haematemesis [Unknown]
